FAERS Safety Report 25656126 (Version 1)
Quarter: 2025Q3

REPORT INFORMATION
  Report Type: Spontaneous
  Country: EU (occurrence: EU)
  Receive Date: 20250807
  Receipt Date: 20250807
  Transmission Date: 20251021
  Serious: Yes (Other)
  Sender: MYLAN
  Company Number: None

PATIENT
  Age: 82 Year
  Sex: Male
  Weight: 58.8 kg

DRUGS (24)
  1. LANSOPRAZOLE [Suspect]
     Active Substance: LANSOPRAZOLE
     Indication: Oesophagitis ulcerative
     Dosage: 15 MILLIGRAM, QD
     Dates: start: 20241230, end: 20241231
  2. LANSOPRAZOLE [Suspect]
     Active Substance: LANSOPRAZOLE
     Dosage: 15 MILLIGRAM, QD
     Route: 048
     Dates: start: 20241230, end: 20241231
  3. LANSOPRAZOLE [Suspect]
     Active Substance: LANSOPRAZOLE
     Dosage: 15 MILLIGRAM, QD
     Route: 048
     Dates: start: 20241230, end: 20241231
  4. LANSOPRAZOLE [Suspect]
     Active Substance: LANSOPRAZOLE
     Dosage: 15 MILLIGRAM, QD
     Dates: start: 20241230, end: 20241231
  5. CEFTRIAXONE SODIUM [Suspect]
     Active Substance: CEFTRIAXONE SODIUM
     Indication: Infection
     Dosage: 2000 MILLIGRAM, QD
     Dates: start: 20241230, end: 20250102
  6. CEFTRIAXONE SODIUM [Suspect]
     Active Substance: CEFTRIAXONE SODIUM
     Dosage: 2000 MILLIGRAM, QD
     Route: 042
     Dates: start: 20241230, end: 20250102
  7. CEFTRIAXONE SODIUM [Suspect]
     Active Substance: CEFTRIAXONE SODIUM
     Dosage: 2000 MILLIGRAM, QD
     Route: 042
     Dates: start: 20241230, end: 20250102
  8. CEFTRIAXONE SODIUM [Suspect]
     Active Substance: CEFTRIAXONE SODIUM
     Dosage: 2000 MILLIGRAM, QD
     Dates: start: 20241230, end: 20250102
  9. CLOPIDOGREL [Suspect]
     Active Substance: CLOPIDOGREL BISULFATE
     Indication: Product used for unknown indication
     Dosage: 75 MILLIGRAM, QD
     Dates: end: 20241230
  10. CLOPIDOGREL [Suspect]
     Active Substance: CLOPIDOGREL BISULFATE
     Dosage: 75 MILLIGRAM, QD
     Route: 048
     Dates: end: 20241230
  11. CLOPIDOGREL [Suspect]
     Active Substance: CLOPIDOGREL BISULFATE
     Dosage: 75 MILLIGRAM, QD
     Route: 048
     Dates: end: 20241230
  12. CLOPIDOGREL [Suspect]
     Active Substance: CLOPIDOGREL BISULFATE
     Dosage: 75 MILLIGRAM, QD
     Dates: end: 20241230
  13. ALLOPURINOL [Suspect]
     Active Substance: ALLOPURINOL
     Indication: Product used for unknown indication
     Dosage: 200 MILLIGRAM, QD
     Dates: end: 20241230
  14. ALLOPURINOL [Suspect]
     Active Substance: ALLOPURINOL
     Dosage: 200 MILLIGRAM, QD
     Route: 048
     Dates: end: 20241230
  15. ALLOPURINOL [Suspect]
     Active Substance: ALLOPURINOL
     Dosage: 200 MILLIGRAM, QD
     Route: 048
     Dates: end: 20241230
  16. ALLOPURINOL [Suspect]
     Active Substance: ALLOPURINOL
     Dosage: 200 MILLIGRAM, QD
     Dates: end: 20241230
  17. SPIRAMYCIN [Suspect]
     Active Substance: SPIRAMYCIN
     Indication: Lung disorder
     Dosage: 1.5 MILLION INTERNATIONAL UNIT, QD (LYOPHILISATE FOR PARENTERAL USE)
     Dates: start: 20250102, end: 20250105
  18. SPIRAMYCIN [Suspect]
     Active Substance: SPIRAMYCIN
     Dosage: 1.5 MILLION INTERNATIONAL UNIT, QD (LYOPHILISATE FOR PARENTERAL USE)
     Route: 042
     Dates: start: 20250102, end: 20250105
  19. SPIRAMYCIN [Suspect]
     Active Substance: SPIRAMYCIN
     Dosage: 1.5 MILLION INTERNATIONAL UNIT, QD (LYOPHILISATE FOR PARENTERAL USE)
     Route: 042
     Dates: start: 20250102, end: 20250105
  20. SPIRAMYCIN [Suspect]
     Active Substance: SPIRAMYCIN
     Dosage: 1.5 MILLION INTERNATIONAL UNIT, QD (LYOPHILISATE FOR PARENTERAL USE)
     Dates: start: 20250102, end: 20250105
  21. PIPERACILLIN SODIUM\TAZOBACTAM SODIUM [Suspect]
     Active Substance: PIPERACILLIN SODIUM\TAZOBACTAM SODIUM
     Indication: Lung disorder
     Dosage: 4 GRAM, Q8H
     Dates: start: 20250102, end: 20250106
  22. PIPERACILLIN SODIUM\TAZOBACTAM SODIUM [Suspect]
     Active Substance: PIPERACILLIN SODIUM\TAZOBACTAM SODIUM
     Dosage: 4 GRAM, Q8H
     Route: 042
     Dates: start: 20250102, end: 20250106
  23. PIPERACILLIN SODIUM\TAZOBACTAM SODIUM [Suspect]
     Active Substance: PIPERACILLIN SODIUM\TAZOBACTAM SODIUM
     Dosage: 4 GRAM, Q8H
     Route: 042
     Dates: start: 20250102, end: 20250106
  24. PIPERACILLIN SODIUM\TAZOBACTAM SODIUM [Suspect]
     Active Substance: PIPERACILLIN SODIUM\TAZOBACTAM SODIUM
     Dosage: 4 GRAM, Q8H
     Dates: start: 20250102, end: 20250106

REACTIONS (1)
  - Hepatitis cholestatic [Recovered/Resolved]

NARRATIVE: CASE EVENT DATE: 20250106
